FAERS Safety Report 24139531 (Version 1)
Quarter: 2024Q3

REPORT INFORMATION
  Report Type: Spontaneous
  Country: CO (occurrence: CO)
  Receive Date: 20240726
  Receipt Date: 20240726
  Transmission Date: 20241016
  Serious: Yes (Hospitalization, Other)
  Sender: Vantive US Healthcare
  Company Number: CO-VANTIVE-2024VAN018309

PATIENT
  Age: 64 Year
  Sex: Female

DRUGS (4)
  1. DIANEAL [Suspect]
     Active Substance: CALCIUM CHLORIDE\DEXTROSE\MAGNESIUM CHLORIDE\SODIUM CHLORIDE\SODIUM LACTATE
     Indication: Peritoneal dialysis
     Dosage: 2000ML, 2 EXCHANGES, DRY NIGHT
     Route: 033
     Dates: start: 20240617, end: 20240717
  2. DIANEAL [Suspect]
     Active Substance: CALCIUM CHLORIDE\DEXTROSE\MAGNESIUM CHLORIDE\SODIUM CHLORIDE\SODIUM LACTATE
     Indication: Peritoneal dialysis
     Dosage: 2000ML, 2 EXCHANGES, DRY NIGHT
     Route: 033
     Dates: start: 20240617, end: 20240717
  3. ERYTHROPOIETIN [Concomitant]
     Active Substance: ERYTHROPOIETIN
     Route: 065
  4. CALCIUM POLYSTYRENE SULFONATE [Concomitant]
     Active Substance: CALCIUM POLYSTYRENE SULFONATE
     Route: 065

REACTIONS (7)
  - Azotaemia [Recovered/Resolved]
  - Peritoneal dialysis complication [Recovered/Resolved]
  - Ultrafiltration failure [Unknown]
  - Hypervolaemia [Recovered/Resolved]
  - Drug ineffective [Unknown]
  - Drug intolerance [Unknown]
  - Dyspnoea [Recovered/Resolved]

NARRATIVE: CASE EVENT DATE: 20240629
